FAERS Safety Report 6105632-0 (Version None)
Quarter: 2009Q1

REPORT INFORMATION
  Report Type: 
  Country: None (occurrence: None)
  Receive Date: 20090304
  Receipt Date: 20090304
  Transmission Date: 20090719
  Serious: Yes (Other)
  Sender: FDA-Public Use
  Company Number: None

PATIENT
  Age: 16 Year
  Sex: Male
  Weight: 81.6475 kg

DRUGS (4)
  1. CLONAZEPAM [Suspect]
     Indication: EPILEPSY
     Dosage: 1/2 MG TWICE DAILY PO
     Route: 048
     Dates: start: 20050215, end: 20081224
  2. VIBE LIQUID VITAMINS [Concomitant]
  3. ACETOMINOPHIN [Concomitant]
  4. IBUPROFEN TABLETS [Concomitant]

REACTIONS (13)
  - ANXIETY [None]
  - AURA [None]
  - BACK PAIN [None]
  - CONDITION AGGRAVATED [None]
  - DYSPNOEA [None]
  - GRAND MAL CONVULSION [None]
  - HUNGER [None]
  - INSOMNIA [None]
  - LACK OF SATIETY [None]
  - NECK PAIN [None]
  - OBSESSIVE THOUGHTS [None]
  - PARTIAL SEIZURES [None]
  - TREMOR [None]
